FAERS Safety Report 21879993 (Version 5)
Quarter: 2023Q1

REPORT INFORMATION
  Report Type: Spontaneous
  Country: US (occurrence: US)
  Receive Date: 20230118
  Receipt Date: 20230215
  Transmission Date: 20230417
  Serious: Yes (Death, Hospitalization, Other)
  Sender: FDA-Public Use
  Company Number: US-002147023-NVSC2023US010870

PATIENT
  Age: 64 Year
  Sex: Male
  Weight: 72.6 kg

DRUGS (46)
  1. PLUVICTO [Suspect]
     Active Substance: LUTETIUM LU-177 VIPIVOTIDE TETRAXETAN
     Indication: Prostate cancer
     Dosage: 193.8 MCI
     Route: 042
     Dates: start: 20230113, end: 20230113
  2. FENTANYL [Concomitant]
     Active Substance: FENTANYL
     Indication: Product used for unknown indication
     Dosage: 2500 UG  (50 MCG/HR) + BASE SOLUTION 100 ML INITIAL RATE= 2ML/HR)
     Route: 042
  3. FENTANYL [Concomitant]
     Active Substance: FENTANYL
     Dosage: 50 UG (Q10MIN, FENTANYL_BOLUS FROM PUMP)
     Route: 042
  4. PEPCID [Concomitant]
     Active Substance: FAMOTIDINE
     Indication: Product used for unknown indication
     Dosage: 20 MG, QD (IVP)
     Route: 042
  5. HYDROCORTISONE [Concomitant]
     Active Substance: HYDROCORTISONE
     Indication: Product used for unknown indication
     Dosage: 50 MG, Q6H (IVP)
     Route: 042
  6. THIAMINE [Concomitant]
     Active Substance: THIAMINE
     Indication: Product used for unknown indication
     Dosage: 500 MG, Q24H
     Route: 042
  7. VANCOMYCIN [Concomitant]
     Active Substance: VANCOMYCIN
     Indication: Product used for unknown indication
     Dosage: 1750 MG (COMPLETED)
     Route: 042
  8. ACETAMINOPHEN [Concomitant]
     Active Substance: ACETAMINOPHEN
     Indication: Product used for unknown indication
     Dosage: 10000 MG, TID (PRN)
     Route: 048
  9. ACETAMINOPHEN [Concomitant]
     Active Substance: ACETAMINOPHEN
     Dosage: 1000 MG (ONCE)
     Route: 042
     Dates: start: 20230115
  10. ACETAMINOPHEN [Concomitant]
     Active Substance: ACETAMINOPHEN
     Dosage: 2.5 MG, (ONCE) (ALBUTEROL 0.083%)
     Route: 065
     Dates: start: 20230115
  11. DEXTROSE [Concomitant]
     Active Substance: DEXTROSE
     Indication: Product used for unknown indication
     Dosage: 25 MG, QD (DEXTROSE 50 PERCENT 50 ML INJECTION, AS DIRCPOE)
     Route: 042
     Dates: start: 20230115
  12. DEXTROSE [Concomitant]
     Active Substance: DEXTROSE
     Dosage: 25 MG, QD (DEXTROSE 50 PERCENT 50 ML INJECTION, AS DIRCPOE)
     Route: 042
     Dates: start: 20230115
  13. CEFTRIAXONE [Concomitant]
     Active Substance: CEFTRIAXONE
     Indication: Product used for unknown indication
     Dosage: 2 MG, Q24H
     Route: 042
  14. FAMOTIDINE [Concomitant]
     Active Substance: FAMOTIDINE
     Indication: Product used for unknown indication
     Dosage: 20 MG, QD
     Route: 041
  15. SODIUM ZIRCONIUM CYCLOSILICATE [Concomitant]
     Active Substance: SODIUM ZIRCONIUM CYCLOSILICATE
     Indication: Product used for unknown indication
     Dosage: 10 MG, TID (GASTRIC TUB)
     Route: 065
  16. CALCIUM CHLORIDE [Concomitant]
     Active Substance: CALCIUM CHLORIDE
     Indication: Product used for unknown indication
     Dosage: 1 MG  (ONCE)
     Route: 042
     Dates: start: 20230115
  17. CALCIUM CHLORIDE [Concomitant]
     Active Substance: CALCIUM CHLORIDE
     Dosage: 1 MG (ONCE)
     Route: 042
     Dates: start: 20230115
  18. CALCIUM CHLORIDE [Concomitant]
     Active Substance: CALCIUM CHLORIDE
     Dosage: 1 MG (ONCE)
     Route: 042
     Dates: start: 20230115
  19. CALCIUM GLUCONATE [Concomitant]
     Active Substance: CALCIUM GLUCONATE
     Indication: Product used for unknown indication
     Dosage: 1 MG (ONCE)
     Route: 042
     Dates: start: 20230115
  20. CALCIUM GLUCONATE [Concomitant]
     Active Substance: CALCIUM GLUCONATE
     Dosage: 1 MG (ONCE)
     Route: 042
     Dates: start: 20230115
  21. CEFEPIME [Concomitant]
     Active Substance: CEFEPIME HYDROCHLORIDE
     Indication: Product used for unknown indication
     Dosage: 2 MG (ONCE)
     Route: 042
     Dates: start: 20230115
  22. DEXAMETHASONE [Concomitant]
     Active Substance: DEXAMETHASONE
     Indication: Product used for unknown indication
     Dosage: 4 MG, BID (BY MOUTH)
     Route: 048
     Dates: start: 20230114
  23. DEXAMETHASONE [Concomitant]
     Active Substance: DEXAMETHASONE
     Dosage: 4 MG (ONCE)
     Route: 042
     Dates: start: 20230115
  24. ETOMIDATE [Concomitant]
     Active Substance: ETOMIDATE
     Indication: Product used for unknown indication
     Dosage: 10 MG (ONCE)
     Route: 042
     Dates: start: 20230115
  25. INSULIN NOS [Concomitant]
     Active Substance: INSULIN NOS
     Indication: Product used for unknown indication
     Dosage: 10 UNIT, (ONCE)
     Route: 042
     Dates: start: 20230115
  26. INSULIN NOS [Concomitant]
     Active Substance: INSULIN NOS
     Dosage: 10 UNIT, (ONCE)
     Route: 042
     Dates: start: 20230115
  27. LACTATED RINGERS SOLUTION [Concomitant]
     Active Substance: CALCIUM CHLORIDE\POTASSIUM CHLORIDE\SODIUM CHLORIDE\SODIUM LACTATE
     Indication: Product used for unknown indication
     Dosage: 1000 ML, (ONCE)
     Route: 042
     Dates: start: 20230115
  28. LACTATED RINGERS SOLUTION [Concomitant]
     Active Substance: CALCIUM CHLORIDE\POTASSIUM CHLORIDE\SODIUM CHLORIDE\SODIUM LACTATE
     Dosage: 1000 ML, (ONCE)
     Route: 042
     Dates: start: 20230115
  29. LACTATED RINGERS SOLUTION [Concomitant]
     Active Substance: CALCIUM CHLORIDE\POTASSIUM CHLORIDE\SODIUM CHLORIDE\SODIUM LACTATE
     Dosage: 1000 ML, (ONCE)
     Route: 065
     Dates: start: 20230115
  30. LACTATED RINGERS SOLUTION [Concomitant]
     Active Substance: CALCIUM CHLORIDE\POTASSIUM CHLORIDE\SODIUM CHLORIDE\SODIUM LACTATE
     Dosage: 500 ML, (ONCE)
     Route: 042
     Dates: start: 20230115
  31. LORAZEPAM [Concomitant]
     Active Substance: LORAZEPAM
     Indication: Product used for unknown indication
     Dosage: 2 MG, (ONCE)
     Route: 042
     Dates: start: 20230115
  32. ROCURONIUM [Concomitant]
     Active Substance: ROCURONIUM BROMIDE
     Indication: Product used for unknown indication
     Dosage: 100 MG, (ONCE)
     Route: 042
     Dates: start: 20230115
  33. SODIUM BICARBONATE [Concomitant]
     Active Substance: SODIUM BICARBONATE
     Indication: Product used for unknown indication
     Dosage: 50 MEQ, (ONCE)
     Route: 042
     Dates: start: 20230115
  34. SODIUM BICARBONATE [Concomitant]
     Active Substance: SODIUM BICARBONATE
     Dosage: 50 MEQ, (ONCE)
     Route: 042
     Dates: start: 20230115
  35. ALBUTEROL [Concomitant]
     Active Substance: ALBUTEROL
     Indication: Product used for unknown indication
     Dosage: 2.5 MG, (ONCE) (ALBUTEROL 0.083% INHALATION SOLN)
     Route: 065
  36. CALCIUM\VITAMIN D [Concomitant]
     Active Substance: CALCIUM\VITAMIN D
     Indication: Product used for unknown indication
     Dosage: UNK, (ONCE A DAY BY MOUTH)
     Route: 048
  37. FUROSEMIDE [Concomitant]
     Active Substance: FUROSEMIDE
     Indication: Product used for unknown indication
     Dosage: 20 MG, (ONCE)
     Route: 048
     Dates: start: 20230113
  38. LISINOPRIL [Concomitant]
     Active Substance: LISINOPRIL
     Indication: Product used for unknown indication
     Dosage: 20 MG, (ONCE, BY MOUTH)
     Route: 048
     Dates: start: 20230113
  39. METOPROLOL [Concomitant]
     Active Substance: METOPROLOL
     Indication: Product used for unknown indication
     Dosage: 25 MG, (ONCE, BY MOUTH)
     Route: 048
     Dates: start: 20230113
  40. MORPHINE [Concomitant]
     Active Substance: MORPHINE
     Indication: Product used for unknown indication
     Dosage: 45 MG, Q12H (BY MOUTH)
     Route: 048
     Dates: start: 20230114
  41. ONDANSETRON [Concomitant]
     Active Substance: ONDANSETRON
     Indication: Product used for unknown indication
     Dosage: 4 MG, Q8H (ORN BY MOUTH)
     Route: 048
  42. OXYCODONE [Concomitant]
     Active Substance: OXYCODONE
     Indication: Product used for unknown indication
     Dosage: 2.5 MG, Q4H (BY MOUTH)
     Route: 048
     Dates: start: 20230111
  43. POLYETHYLENE GLYCOL 3350 [Concomitant]
     Active Substance: POLYETHYLENE GLYCOL 3350
     Indication: Product used for unknown indication
     Dosage: 17 MG, (ONCE, BY MOUTH)
     Route: 048
     Dates: start: 20230114
  44. ROSUVASTATIN [Concomitant]
     Active Substance: ROSUVASTATIN
     Indication: Product used for unknown indication
     Dosage: 40 MG, (ONCE, BY MOUTH)
     Route: 048
     Dates: start: 20230113
  45. EPINEPHRINE [Concomitant]
     Active Substance: EPINEPHRINE
     Indication: Product used for unknown indication
     Dosage: UNK (0.1 MCG/KG/MIN) + BASE SOLUTION 250 ML INITIAL RATE= 6.56 ML/HR IV)
     Route: 065
  46. SENNA [Concomitant]
     Active Substance: SENNA LEAF\SENNOSIDES\SENNOSIDES A AND B
     Indication: Product used for unknown indication
     Dosage: 17.2 MG (AT BEDTIME, BY MOUTH)
     Route: 048

REACTIONS (7)
  - Sepsis [Fatal]
  - Hyperkalaemia [Fatal]
  - Multiple organ dysfunction syndrome [Fatal]
  - Generalised tonic-clonic seizure [Recovering/Resolving]
  - Mental impairment [Unknown]
  - Hypotension [Unknown]
  - Electrolyte imbalance [Unknown]

NARRATIVE: CASE EVENT DATE: 20230115
